FAERS Safety Report 26133557 (Version 1)
Quarter: 2025Q4

REPORT INFORMATION
  Report Type: Spontaneous
  Country: AU (occurrence: AU)
  Receive Date: 20251209
  Receipt Date: 20251209
  Transmission Date: 20260118
  Serious: No
  Sender: ALKEM
  Company Number: AU-ALKEM LABORATORIES LIMITED-AU-ALKEM-2025-10180

PATIENT

DRUGS (2)
  1. VANCOMYCIN [Interacting]
     Active Substance: VANCOMYCIN
     Indication: Product used for unknown indication
     Dosage: UNK
     Route: 065
  2. METHOTREXATE [Interacting]
     Active Substance: METHOTREXATE
     Indication: Osteosarcoma
     Dosage: UNK (HIGH DOSE)
     Route: 065

REACTIONS (2)
  - Drug clearance decreased [Unknown]
  - Drug interaction [Unknown]
